FAERS Safety Report 16056413 (Version 1)
Quarter: 2019Q2

REPORT INFORMATION
  Report Type: Spontaneous
  Country: US (occurrence: US)
  Receive Date: 20190308
  Receipt Date: 20190308
  Transmission Date: 20190711
  Serious: Yes (Other)
  Sender: FDA-Public Use
  Company Number: None

PATIENT
  Age: 36 Year
  Sex: Female
  Weight: 58.97 kg

DRUGS (1)
  1. SKYLA [Suspect]
     Active Substance: LEVONORGESTREL

REACTIONS (4)
  - Complication of device removal [None]
  - Menstruation delayed [None]
  - Post procedural haemorrhage [None]
  - Menstrual disorder [None]

NARRATIVE: CASE EVENT DATE: 20190308
